FAERS Safety Report 19841988 (Version 1)
Quarter: 2021Q3

REPORT INFORMATION
  Report Type: Spontaneous
  Country: US (occurrence: US)
  Receive Date: 20210915
  Receipt Date: 20210915
  Transmission Date: 20211014
  Serious: Yes (Hospitalization)
  Sender: FDA-Public Use
  Company Number: US-PFIZER INC-202101152196

PATIENT
  Age: 44 Year
  Sex: Female
  Weight: 47.63 kg

DRUGS (1)
  1. CHANTIX [Suspect]
     Active Substance: VARENICLINE TARTRATE
     Indication: SMOKING CESSATION THERAPY
     Dosage: 0.5 MG, 2X/DAY (ONE IN THE MORNING AND ONE AT NIGHT)
     Dates: start: 202006

REACTIONS (5)
  - Recalled product administered [Unknown]
  - Attention deficit hyperactivity disorder [Unknown]
  - Psychotic disorder [Not Recovered/Not Resolved]
  - Paranoia [Unknown]
  - Anxiety [Unknown]

NARRATIVE: CASE EVENT DATE: 202006
